FAERS Safety Report 4717906-6 (Version None)
Quarter: 2005Q3

REPORT INFORMATION
  Report Type: 
  Country: None (occurrence: None)
  Receive Date: 20050718
  Receipt Date: 20050126
  Transmission Date: 20060218
  Serious: No
  Sender: FDA-Public Use
  Company Number: 2005000198

PATIENT
  Age: 65 Year
  Sex: Female

DRUGS (6)
  1. TARCEVA [Suspect]
     Indication: NON-SMALL CELL LUNG CANCER
     Dosage: 150 MG (PO QD), ORAL
     Route: 048
     Dates: start: 20050118, end: 20050120
  2. MEGESTROL ACETATE [Concomitant]
  3. METOPROLOL TARTRATE [Concomitant]
  4. FENTANYL [Concomitant]
  5. LEVOTHYROXINE SODIUM [Concomitant]
  6. PROMETHAZINE HCL [Concomitant]

REACTIONS (1)
  - HALLUCINATION [None]
